FAERS Safety Report 4714426-X (Version None)
Quarter: 2005Q3

REPORT INFORMATION
  Report Type: 
  Country: None (occurrence: None)
  Receive Date: 20050705
  Receipt Date: 20050329
  Transmission Date: 20060218
  Serious: Yes (Other)
  Sender: FDA-Public Use
  Company Number: 2004-0007869

PATIENT
  Age: 59 Year
  Sex: Male
  Weight: 85.7298 kg

DRUGS (6)
  1. VIREAD [Suspect]
     Indication: HIV INFECTION
     Dosage: 300 MG, 1 IN 1 D, ORAL
     Route: 048
     Dates: start: 20020930, end: 20040807
  2. LAMIVUDINE [Concomitant]
  3. REYATAZ [Concomitant]
  4. WELLBUTRIN SR [Concomitant]
  5. TRICOR [Concomitant]
  6. ASA (ACETYLSALICYLIC ACID) (325 MG) [Concomitant]

REACTIONS (2)
  - BLOOD CREATININE INCREASED [None]
  - FANCONI SYNDROME ACQUIRED [None]
